FAERS Safety Report 22523542 (Version 1)
Quarter: 2023Q2

REPORT INFORMATION
  Report Type: Spontaneous
  Country: US (occurrence: US)
  Receive Date: 20230606
  Receipt Date: 20230606
  Transmission Date: 20230722
  Serious: No
  Sender: FDA-Public Use
  Company Number: US-CHIESI-2023CHF02568

PATIENT
  Age: 68 Year
  Sex: Male
  Weight: 66 kg

DRUGS (2)
  1. FERRIPROX [Suspect]
     Active Substance: DEFERIPRONE
     Indication: Iron metabolism disorder
     Dosage: 1000 MILLIGRAM, BID
     Route: 048
     Dates: start: 20221022
  2. FERRIPROX [Suspect]
     Active Substance: DEFERIPRONE
     Indication: Sickle cell anaemia with crisis

REACTIONS (3)
  - Hypophagia [Not Recovered/Not Resolved]
  - Product dose omission issue [Not Recovered/Not Resolved]
  - Off label use [Unknown]

NARRATIVE: CASE EVENT DATE: 20221022
